FAERS Safety Report 4555806-5 (Version None)
Quarter: 2005Q1

REPORT INFORMATION
  Report Type: 
  Country: None (occurrence: None)
  Receive Date: 20050118
  Receipt Date: 20031211
  Transmission Date: 20050727
  Serious: No
  Sender: FDA-Public Use
  Company Number: A03200302983

PATIENT
  Age: 68 Year
  Sex: Male

DRUGS (1)
  1. UROXATRAL [Suspect]
     Dosage: ORAL
     Route: 048

REACTIONS (1)
  - PENILE ULCERATION [None]
